FAERS Safety Report 16254602 (Version 3)
Quarter: 2019Q4

REPORT INFORMATION
  Report Type: Other
  Country: DE (occurrence: DE)
  Receive Date: 20190430
  Receipt Date: 20191009
  Transmission Date: 20200122
  Serious: Yes (Other)
  Sender: FDA-Public Use
  Company Number: DE-MACLEODS PHARMACEUTICALS US LTD-MAC2019021064

PATIENT

DRUGS (1)
  1. TAMSULOSIN [Suspect]
     Active Substance: TAMSULOSIN
     Indication: BENIGN PROSTATIC HYPERPLASIA
     Dosage: FOR YEARS, GASTRO-RESISTANT CAPSULE, MODIFIED-RELEASE CAPSULE, HARD
     Route: 048

REACTIONS (2)
  - Cataract [Unknown]
  - Eye disorder [Unknown]
